FAERS Safety Report 15163460 (Version 1)
Quarter: 2018Q3

REPORT INFORMATION
  Report Type: Spontaneous
  Country: IT (occurrence: IT)
  Receive Date: 20180719
  Receipt Date: 20180719
  Transmission Date: 20181010
  Serious: Yes (Other)
  Sender: FDA-Public Use
  Company Number: IT-TEVA-2018-IT-929090

PATIENT
  Age: 39 Year
  Sex: Male

DRUGS (2)
  1. AZITHROMYCIN ANHYDROUS. [Suspect]
     Active Substance: AZITHROMYCIN ANHYDROUS
     Indication: TONSILLITIS
     Route: 048
  2. AMOXICILLIN W/CLAVULANIC ACID [Suspect]
     Active Substance: AMOXICILLIN\CLAVULANIC ACID
     Indication: TONSILLITIS
     Route: 048
     Dates: start: 20180604, end: 20180605

REACTIONS (3)
  - Pruritus [Recovering/Resolving]
  - Rash [Recovering/Resolving]
  - Swelling face [Recovering/Resolving]

NARRATIVE: CASE EVENT DATE: 20180605
